FAERS Safety Report 5863832-9 (Version None)
Quarter: 2008Q3

REPORT INFORMATION
  Report Type: 
  Country: None (occurrence: None)
  Receive Date: 20080827
  Receipt Date: 20080818
  Transmission Date: 20090109
  Serious: No
  Sender: FDA-Public Use
  Company Number: 2008S1015141

PATIENT
  Age: 0 Year
  Sex: Female
  Weight: 6.8539 kg

DRUGS (1)
  1. AMNESTEEM [Suspect]
     Dosage: 40 MG; TWIDE A DAY; TRANSPLACENTAL
     Route: 064
     Dates: start: 20070213, end: 20070517

REACTIONS (5)
  - DRUG EXPOSURE VIA BREAST MILK [None]
  - MATERNAL DRUGS AFFECTING FOETUS [None]
  - OTITIS MEDIA [None]
  - PREGNANCY [None]
  - UPPER RESPIRATORY TRACT INFECTION [None]
